FAERS Safety Report 5281635-3 (Version None)
Quarter: 2007Q1

REPORT INFORMATION
  Report Type: 
  Country: None (occurrence: None)
  Receive Date: 20070330
  Receipt Date: 20070327
  Transmission Date: 20070707
  Serious: Yes (Death)
  Sender: FDA-Public Use
  Company Number: 2007SE01717

PATIENT
  Age: 85 Year
  Sex: Male

DRUGS (3)
  1. SEROQUEL [Suspect]
     Indication: AGITATION
     Route: 048
     Dates: start: 20070201, end: 20070201
  2. SEROQUEL [Suspect]
     Route: 048
     Dates: start: 20070201, end: 20070201
  3. SEROQUEL [Suspect]
     Route: 048
     Dates: start: 20070201

REACTIONS (1)
  - SUDDEN DEATH [None]
